FAERS Safety Report 5163387-0 (Version None)
Quarter: 2006Q4

REPORT INFORMATION
  Report Type: 
  Country: None (occurrence: None)
  Receive Date: 20061121
  Receipt Date: 20061110
  Transmission Date: 20070319
  Serious: Yes (Hospitalization, Other)
  Sender: FDA-Public Use
  Company Number: CERZ-11398

PATIENT
  Age: 70 Year
  Sex: Female
  Weight: 43 kg

DRUGS (1)
  1. CEREZYME [Suspect]
     Indication: GAUCHER'S DISEASE
     Dosage: 60 U/KG Q2WKS IV
     Route: 042
     Dates: start: 20010605

REACTIONS (3)
  - ASTHENIA [None]
  - NEOPLASM MALIGNANT [None]
  - WEIGHT DECREASED [None]
